FAERS Safety Report 16452945 (Version 1)
Quarter: 2019Q2

REPORT INFORMATION
  Report Type: Spontaneous
  Country: US (occurrence: US)
  Receive Date: 20190619
  Receipt Date: 20190619
  Transmission Date: 20190711
  Serious: No
  Sender: FDA-Public Use
  Company Number: US-SA-2019SA160274

PATIENT
  Sex: Female

DRUGS (1)
  1. ZANTAC [Suspect]
     Active Substance: RANITIDINE HYDROCHLORIDE

REACTIONS (5)
  - Drug ineffective [Unknown]
  - Tongue discomfort [Unknown]
  - Weight decreased [Unknown]
  - Salivary hypersecretion [Unknown]
  - Oral discomfort [Unknown]
